FAERS Safety Report 8129441-6 (Version None)
Quarter: 2011Q4

REPORT INFORMATION
  Report Type: 
  Country: None (occurrence: None)
  Receive Date: 20111227
  Receipt Date: 20110831
  Transmission Date: 20120403
  Serious: No
  Sender: FDA-Public Use
  Company Number: PHEH2011US03198

PATIENT
  Sex: Male
  Weight: 69.8 kg

DRUGS (7)
  1. GABAPENTIN [Concomitant]
  2. LISINOPRIL [Concomitant]
  3. ZOLOFT [Concomitant]
  4. SYNTHROID [Concomitant]
  5. TRAZODONE HYDROCHLORIDE [Concomitant]
  6. VITAMIN B12 [Concomitant]
  7. GILENYA [Suspect]
     Dosage: 0.5 MG/ 1 CAP EVERY DAY, ORAL
     Route: 048

REACTIONS (2)
  - VISUAL IMPAIRMENT [None]
  - NYSTAGMUS [None]
